FAERS Safety Report 23448074 (Version 2)
Quarter: 2024Q1

REPORT INFORMATION
  Report Type: Spontaneous
  Country: KR (occurrence: KR)
  Receive Date: 20240126
  Receipt Date: 20240201
  Transmission Date: 20240410
  Serious: Yes (Death)
  Sender: FDA-Public Use
  Company Number: KR-PFIZER INC-PV202400011605

PATIENT
  Age: 73 Year
  Sex: Female

DRUGS (10)
  1. IBRANCE [Suspect]
     Active Substance: PALBOCICLIB
     Dosage: 100 MG, 1X/DAY, 21 DAYS (TAKE FOR 3 WEEKS AND WITHDRAWAL 1 WEEK)
     Route: 048
  2. IBRANCE [Suspect]
     Active Substance: PALBOCICLIB
     Dosage: 100 MG, 1X/DAY, 14 DAYS (TAKE FOR 2 WEEKS AND WITHDRAWAL 2 WEEK)
     Route: 048
  3. SODIUM CHLORIDE [Concomitant]
     Active Substance: SODIUM CHLORIDE
     Dosage: 0.9G/100ML/BAG, ONCE, ONE DAY
  4. SODIUM CHLORIDE [Concomitant]
     Active Substance: SODIUM CHLORIDE
     Dosage: 0.18G/20ML, ONCE, ONE DAY
  5. HYDROCORTISONE SODIUM SUCCINATE [Concomitant]
     Active Substance: HYDROCORTISONE SODIUM SUCCINATE
     Dosage: 0.1337G/1BOTTLE, ONCE, ONE DAY
  6. CHLORPHENIRAMINE MALEATE [Concomitant]
     Active Substance: CHLORPHENIRAMINE MALEATE
     Dosage: ONCE, ONE DAY
  7. SOLONDO [PREDNISOLONE] [Concomitant]
     Dosage: 2T, ONCE DAILY, FOR 14 DAYS, AFTER LUNCH
  8. RAPISON [Concomitant]
     Dosage: 1T, TWICE DAILY, FOR 14 DAYS, AFTER MORNING AND EVENING MEALS
  9. GODEX [ADENINE HYDROCHLORIDE;BIFENDATE;CARNITINE OROTATE;CYANOCOBALAMI [Concomitant]
     Dosage: 1T, THREE TIMES DAILY, FOR 14 DAYS, AFTER EACH MEAL
  10. ENCOVER [Concomitant]
     Dosage: 400 ML, 2X/DAY, 14 DAYS

REACTIONS (8)
  - Second primary malignancy [Fatal]
  - Thymic carcinoma [Fatal]
  - Neoplasm progression [Fatal]
  - Essential hypertension [Unknown]
  - Bronchitis [Unknown]
  - Gastrooesophageal reflux disease [Unknown]
  - Off label use [Unknown]
  - Product use issue [Unknown]
